FAERS Safety Report 18627446 (Version 4)
Quarter: 2022Q2

REPORT INFORMATION
  Report Type: Report from Study
  Country: FR (occurrence: FR)
  Receive Date: 20201217
  Receipt Date: 20220628
  Transmission Date: 20220720
  Serious: Yes (Death, Hospitalization, Other)
  Sender: FDA-Public Use
  Company Number: FR-GLAXOSMITHKLINE-FR2020EME247222

PATIENT

DRUGS (9)
  1. BELANTAMAB MAFODOTIN [Suspect]
     Active Substance: BELANTAMAB MAFODOTIN
     Indication: Plasma cell myeloma
     Dosage: 2.5 MG/KG, CYC
     Route: 042
     Dates: start: 20201029, end: 20201221
  2. BELANTAMAB MAFODOTIN [Suspect]
     Active Substance: BELANTAMAB MAFODOTIN
     Dosage: 2.5 MG/KG, CYC
     Route: 042
     Dates: start: 20201201
  3. BELANTAMAB MAFODOTIN [Suspect]
     Active Substance: BELANTAMAB MAFODOTIN
     Dosage: 200 MG
     Route: 042
     Dates: start: 20201029
  4. BELANTAMAB MAFODOTIN [Suspect]
     Active Substance: BELANTAMAB MAFODOTIN
     Dosage: 200 UNK
     Route: 042
     Dates: start: 20201201
  5. BELANTAMAB MAFODOTIN [Suspect]
     Active Substance: BELANTAMAB MAFODOTIN
     Dosage: 200 MG/KG
     Route: 042
     Dates: start: 20201221
  6. VIDAZA [Concomitant]
     Active Substance: AZACITIDINE
     Indication: Product used for unknown indication
     Dosage: UNK
     Dates: start: 202007, end: 202010
  7. VENETOCLAX [Concomitant]
     Active Substance: VENETOCLAX
     Indication: Product used for unknown indication
     Dosage: UNK
     Dates: start: 202007, end: 202010
  8. POMALIDOMIDE [Concomitant]
     Active Substance: POMALIDOMIDE
     Indication: Product used for unknown indication
     Dosage: UNK
     Dates: start: 202007, end: 202010
  9. DEXAMETHASONE [Concomitant]
     Active Substance: DEXAMETHASONE
     Indication: Product used for unknown indication
     Dosage: UNK
     Dates: start: 202007, end: 202010

REACTIONS (6)
  - Fall [Fatal]
  - Cataract [Unknown]
  - Thrombocytopenia [Recovered/Resolved]
  - Pancytopenia [Recovered/Resolved]
  - Dry eye [Unknown]
  - Asthenia [Unknown]

NARRATIVE: CASE EVENT DATE: 20201119
